FAERS Safety Report 9575736 (Version 1)
Quarter: 2013Q4

REPORT INFORMATION
  Report Type: Spontaneous
  Country: US (occurrence: US)
  Receive Date: 20131001
  Receipt Date: 20131001
  Transmission Date: 20140711
  Serious: No
  Sender: FDA-Public Use
  Company Number: US-AMGEN-USASP2012041346

PATIENT
  Age: 62 Year
  Sex: Male
  Weight: 81.63 kg

DRUGS (5)
  1. PROCRIT [Suspect]
     Indication: ANAEMIA
     Dosage: 40000 IU, QWK
     Route: 058
     Dates: start: 20120620
  2. RIBASPHERE [Concomitant]
  3. PEGINTRON                          /01543001/ [Concomitant]
  4. LOVAZA [Concomitant]
  5. NADOLOL [Concomitant]

REACTIONS (2)
  - Discomfort [Not Recovered/Not Resolved]
  - Pruritus [Not Recovered/Not Resolved]
